APPROVED DRUG PRODUCT: X-TROZINE L.A.
Active Ingredient: PHENDIMETRAZINE TARTRATE
Strength: 105MG
Dosage Form/Route: CAPSULE, EXTENDED RELEASE;ORAL
Application: A087371 | Product #001
Applicant: SHIRE RICHWOOD INC
Approved: Aug 24, 1982 | RLD: No | RS: No | Type: DISCN